FAERS Safety Report 4280815-3 (Version None)
Quarter: 2004Q1

REPORT INFORMATION
  Report Type: 
  Country: None (occurrence: None)
  Receive Date: 20040127
  Receipt Date: 20040115
  Transmission Date: 20041129
  Serious: Yes (Life-Threatening, Hospitalization, Other)
  Sender: FDA-Public Use
  Company Number: HQWYE749818APR03

PATIENT
  Age: 8 Month
  Sex: Male

DRUGS (3)
  1. CHILDREN'S ADVIL [Suspect]
     Indication: VARICELLA
     Dosage: 20 MG/ML ORAL
     Route: 048
     Dates: start: 20030305, end: 20030307
  2. ACETAMINOPHEN [Suspect]
     Indication: VARICELLA
     Dosage: 50 MG DOSE FREQUENCY ORAL
     Route: 048
     Dates: start: 20030305
  3. ACETAMINOPHEN [Suspect]
     Indication: VARICELLA
     Dosage: ORAL
     Route: 048
     Dates: start: 20030305

REACTIONS (7)
  - ABSCESS [None]
  - BETA HAEMOLYTIC STREPTOCOCCAL INFECTION [None]
  - CELLULITIS [None]
  - NECROTISING FASCIITIS [None]
  - PYREXIA [None]
  - SCAR [None]
  - STAPHYLOCOCCAL INFECTION [None]
